FAERS Safety Report 19266353 (Version 4)
Quarter: 2021Q4

REPORT INFORMATION
  Report Type: Report from Study
  Country: PE (occurrence: PE)
  Receive Date: 20210517
  Receipt Date: 20211118
  Transmission Date: 20220303
  Serious: Yes (Other)
  Sender: FDA-Public Use
  Company Number: PE-BAYER-2021-127548

PATIENT
  Age: 56 Year
  Sex: Male

DRUGS (3)
  1. NEXAVAR [Suspect]
     Active Substance: SORAFENIB
     Indication: Hepatocellular carcinoma
     Dosage: 800 MG PER DAY
     Dates: start: 20200224
  2. INSULIN GLARGINE [Concomitant]
     Active Substance: INSULIN GLARGINE
     Indication: Diabetes mellitus
  3. VALSARTAN [Concomitant]
     Active Substance: VALSARTAN
     Indication: Hypertension

REACTIONS (9)
  - Gait disturbance [None]
  - Leg amputation [Recovering/Resolving]
  - Skin wound [Recovering/Resolving]
  - Exercise lack of [Not Recovered/Not Resolved]
  - Mobility decreased [Not Recovered/Not Resolved]
  - Limb injury [Unknown]
  - Adverse reaction [None]
  - Pain [Not Recovered/Not Resolved]
  - Blister infected [None]

NARRATIVE: CASE EVENT DATE: 20210101
